FAERS Safety Report 4823564-2 (Version None)
Quarter: 2005Q4

REPORT INFORMATION
  Report Type: 
  Country: None (occurrence: None)
  Receive Date: 20051109
  Receipt Date: 20051028
  Transmission Date: 20060501
  Serious: Yes (Hospitalization, Other)
  Sender: FDA-Public Use
  Company Number: GB-BRISTOL-MYERS SQUIBB COMPANY-13162508

PATIENT
  Age: 35 Year
  Sex: Male

DRUGS (5)
  1. REYATAZ [Suspect]
     Route: 048
  2. RITONAVIR [Concomitant]
  3. ZIDOVUDINE [Concomitant]
  4. TENOFOVIR [Concomitant]
  5. DAPSONE [Concomitant]

REACTIONS (5)
  - BLOOD CREATINE INCREASED [None]
  - MYOSITIS [None]
  - PYREXIA [None]
  - RASH [None]
  - RHABDOMYOLYSIS [None]
